FAERS Safety Report 12000752 (Version 1)
Quarter: 2016Q1

REPORT INFORMATION
  Report Type: Spontaneous
  Country: GB (occurrence: GB)
  Receive Date: 20160204
  Receipt Date: 20160204
  Transmission Date: 20160526
  Serious: Yes (Hospitalization, Other)
  Sender: FDA-Public Use
  Company Number: GB-ABBVIE-15K-167-1509834-00

PATIENT
  Age: 36 Year
  Sex: Female
  Weight: 60 kg

DRUGS (3)
  1. HUMIRA [Suspect]
     Active Substance: ADALIMUMAB
     Indication: COLITIS ULCERATIVE
     Route: 058
     Dates: start: 201508, end: 20151103
  2. AZATHIOPRINE. [Concomitant]
     Active Substance: AZATHIOPRINE
     Indication: CROHN^S DISEASE
     Route: 048
     Dates: start: 201508, end: 201511
  3. HUMIRA [Suspect]
     Active Substance: ADALIMUMAB
     Indication: CROHN^S DISEASE

REACTIONS (16)
  - Malaise [Unknown]
  - Immune system disorder [Unknown]
  - Feeling hot [Unknown]
  - Lymph node tuberculosis [Unknown]
  - Pain in extremity [Unknown]
  - Vomiting [Unknown]
  - Neck mass [Recovering/Resolving]
  - Feeling of body temperature change [Unknown]
  - Lymphadenopathy [Unknown]
  - Local swelling [Unknown]
  - Chromaturia [Unknown]
  - Lymph node abscess [Unknown]
  - Sepsis [Unknown]
  - Necrosis [Unknown]
  - Atelectasis [Unknown]
  - Tuberculosis [Unknown]

NARRATIVE: CASE EVENT DATE: 201511
